FAERS Safety Report 4395145-9 (Version None)
Quarter: 2004Q3

REPORT INFORMATION
  Report Type: 
  Country: None (occurrence: None)
  Receive Date: 20040706
  Receipt Date: 20040625
  Transmission Date: 20050211
  Serious: Yes (Disabling, Other)
  Sender: FDA-Public Use
  Company Number: 2004209632DE

PATIENT
  Age: 41 Year
  Sex: Female
  Weight: 42 kg

DRUGS (3)
  1. ZYVOXID 600MG (LINEZOLID) TABLET [Suspect]
     Indication: PNEUMONIA STAPHYLOCOCCAL
     Dosage: SEE IMAGE
     Route: 048
     Dates: start: 20030701, end: 20040224
  2. ZYVOXID 600MG (LINEZOLID) TABLET [Suspect]
     Indication: PNEUMONIA STAPHYLOCOCCAL
     Dosage: SEE IMAGE
     Route: 048
     Dates: start: 20031101, end: 20040224
  3. URSO FALK [Concomitant]

REACTIONS (5)
  - ANAEMIA [None]
  - HYPOAESTHESIA [None]
  - OPTIC NEUROPATHY [None]
  - PNEUMONIA [None]
  - POLYNEUROPATHY [None]
